FAERS Safety Report 16244235 (Version 1)
Quarter: 2019Q2

REPORT INFORMATION
  Report Type: Spontaneous
  Country: US (occurrence: US)
  Receive Date: 20190322
  Receipt Date: 20190322
  Transmission Date: 20190711
  Serious: No
  Sender: FDA-Public Use
  Company Number: None

PATIENT
  Age: 17 Year
  Sex: Female
  Weight: 68.04 kg

DRUGS (1)
  1. STELARA [Suspect]
     Active Substance: USTEKINUMAB
     Indication: PSORIASIS
     Dosage: INJECT 45MG SUBCUTANEOUSLY ON DAY 0 AND DAY 28 AS?DIRECTED?
     Route: 058
     Dates: start: 201901

REACTIONS (2)
  - Loss of consciousness [None]
  - Hypersensitivity [None]
